FAERS Safety Report 15436755 (Version 5)
Quarter: 2018Q4

REPORT INFORMATION
  Report Type: Report from Study
  Country: US (occurrence: US)
  Receive Date: 20180927
  Receipt Date: 20181109
  Transmission Date: 20190204
  Serious: Yes (Hospitalization)
  Sender: FDA-Public Use
  Company Number: US-ACTELION-A-NJ2017-158938

PATIENT
  Age: 56 Year
  Sex: Female

DRUGS (4)
  1. ADEMPAS [Suspect]
     Active Substance: RIOCIGUAT
     Indication: PRODUCT USED FOR UNKNOWN INDICATION
     Dosage: 2 MG, UNK
     Route: 065
  2. OPSUMIT [Suspect]
     Active Substance: MACITENTAN
     Indication: PULMONARY ARTERIAL HYPERTENSION
     Dosage: 10 MG, QD
     Route: 048
     Dates: start: 20160109
  3. REMODULIN [Suspect]
     Active Substance: TREPROSTINIL
     Indication: PRODUCT USED FOR UNKNOWN INDICATION
     Route: 065
  4. UPTRAVI [Suspect]
     Active Substance: SELEXIPAG
     Indication: PULMONARY ARTERIAL HYPERTENSION
     Dosage: 1600 MCG, BID
     Route: 048
     Dates: start: 20160927, end: 20180827

REACTIONS (17)
  - Fluid overload [Recovered/Resolved]
  - Pneumonia [Recovered/Resolved]
  - Complication associated with device [Unknown]
  - Dizziness postural [Unknown]
  - Foot fracture [Recovering/Resolving]
  - Condition aggravated [Unknown]
  - Loss of consciousness [Recovering/Resolving]
  - Pulmonary arterial hypertension [Unknown]
  - Dyspnoea [Recovering/Resolving]
  - Pleural effusion [Recovered/Resolved]
  - Weight increased [Recovered/Resolved]
  - Headache [Recovering/Resolving]
  - Dyspnoea exertional [Unknown]
  - Swelling [Recovering/Resolving]
  - Disease progression [Unknown]
  - Fatigue [Unknown]
  - Tremor [Unknown]

NARRATIVE: CASE EVENT DATE: 2017
